FAERS Safety Report 8297603-3 (Version None)
Quarter: 2012Q2

REPORT INFORMATION
  Report Type: 
  Country: None (occurrence: None)
  Receive Date: 20120419
  Receipt Date: 20120417
  Transmission Date: 20120825
  Serious: Yes (Other)
  Sender: FDA-Public Use
  Company Number: PHHY2012DE022932

PATIENT
  Sex: Female
  Weight: 55 kg

DRUGS (4)
  1. ZOLADEX [Concomitant]
     Indication: BREAST CANCER
     Dosage: UNK UKN, UNK
  2. TAMOXIFEN CITRATE [Concomitant]
     Indication: BREAST CANCER
     Dates: start: 20091223
  3. ZOMETA [Suspect]
     Indication: BREAST CANCER
     Dosage: 4 MG, EVERY 6 MONTHS
     Route: 042
  4. LEVOTHYROXINE SODIUM [Concomitant]
     Route: 048
     Dates: start: 19900101

REACTIONS (1)
  - BLOOD PRESSURE SYSTOLIC INCREASED [None]
